FAERS Safety Report 23216276 (Version 1)
Quarter: 2023Q4

REPORT INFORMATION
  Report Type: Spontaneous
  Country: US (occurrence: US)
  Receive Date: 20231122
  Receipt Date: 20231122
  Transmission Date: 20240109
  Serious: Yes (Other)
  Sender: FDA-Public Use
  Company Number: US-ENDO-CASE-0045477

PATIENT
  Sex: Male

DRUGS (7)
  1. OPANA ER [Suspect]
     Active Substance: OXYMORPHONE HYDROCHLORIDE
  2. TRAMADOL HYDROCHLORIDE [Suspect]
     Active Substance: TRAMADOL HYDROCHLORIDE
  3. OPANA [Suspect]
     Active Substance: OXYMORPHONE HYDROCHLORIDE
  4. MORPHINE SULFATE [Suspect]
     Active Substance: MORPHINE SULFATE
  5. OXYMORPHONE HYDROCHLORIDE [Suspect]
     Active Substance: OXYMORPHONE HYDROCHLORIDE
  6. FENTANYL CITRATE [Suspect]
     Active Substance: FENTANYL CITRATE
  7. DEPODUR [Suspect]
     Active Substance: MORPHINE SULFATE

REACTIONS (2)
  - Overdose [Unknown]
  - Dependence [Unknown]
